FAERS Safety Report 7379644 (Version 3)
Quarter: 2012Q4

REPORT INFORMATION
  Report Type: Report from Study
  Country: DE (occurrence: DE)
  Receive Date: 20100506
  Receipt Date: 20121213
  Transmission Date: 20130627
  Serious: Yes (Hospitalization)
  Sender: FDA-Public Use
  Company Number: PHHO2010DE06547

PATIENT
  Age: 55 Year
  Sex: Male
  Weight: 62.1 kg

DRUGS (2)
  1. AFINITOR [Suspect]
     Indication: HEPATIC CANCER METASTATIC
     Dosage: 2.5 mg
     Route: 048
     Dates: start: 20090806
  2. AVASTIN [Suspect]
     Indication: HEPATIC CANCER METASTATIC
     Dosage: UNK
     Route: 042
     Dates: start: 20090806

REACTIONS (2)
  - Subileus [Unknown]
  - Dehydration [Recovered/Resolved]
